FAERS Safety Report 9735851 (Version 1)
Quarter: 2013Q4

REPORT INFORMATION
  Report Type: Spontaneous
  Country: US (occurrence: US)
  Receive Date: 20131206
  Receipt Date: 20131206
  Transmission Date: 20140711
  Serious: No
  Sender: FDA-Public Use
  Company Number: US-GILEAD-2009-0024110

PATIENT
  Sex: Female

DRUGS (9)
  1. LETAIRIS [Suspect]
     Indication: PULMONARY ARTERIAL HYPERTENSION
     Route: 048
     Dates: start: 20090708, end: 20090811
  2. ZYRTEC [Concomitant]
  3. SPIRIVA [Concomitant]
  4. POTASSIUM [Concomitant]
  5. FLUOXETINE [Concomitant]
  6. FUROSEMIDE [Concomitant]
  7. ZOLPIDEM [Concomitant]
  8. MVI [Concomitant]
  9. BRIMONIDINE [Concomitant]

REACTIONS (4)
  - Dizziness [Recovered/Resolved]
  - Hypotension [Recovered/Resolved]
  - Blood pressure fluctuation [Recovered/Resolved]
  - Oedema peripheral [Recovered/Resolved]
